FAERS Safety Report 25482955 (Version 1)
Quarter: 2025Q2

REPORT INFORMATION
  Report Type: Spontaneous
  Country: US (occurrence: None)
  Receive Date: 20250625
  Receipt Date: 20250625
  Transmission Date: 20250716
  Serious: Yes (Other)
  Sender: FDA-CTU
  Company Number: None

PATIENT
  Age: 39 Year
  Sex: Female
  Weight: 95.7 kg

DRUGS (1)
  1. ZEPOSIA [Suspect]
     Active Substance: OZANIMOD HYDROCHLORIDE
     Indication: Multiple sclerosis
     Dosage: 0.92 MG DAILY ORAL ?
     Route: 048
     Dates: start: 20250108, end: 20250609

REACTIONS (3)
  - Genital lesion [None]
  - Anogenital warts [None]
  - Papilloma viral infection [None]

NARRATIVE: CASE EVENT DATE: 20250511
